FAERS Safety Report 8198607-1 (Version None)
Quarter: 2012Q1

REPORT INFORMATION
  Report Type: 
  Country: None (occurrence: None)
  Receive Date: 20120309
  Receipt Date: 20120117
  Transmission Date: 20120608
  Serious: No
  Sender: FDA-Public Use
  Company Number: US-AMGEN-USASP2012003443

PATIENT
  Age: 77 Year
  Sex: Female

DRUGS (16)
  1. LEVOTHYROXINE SODIUM [Concomitant]
     Dosage: 75 MUG, QD
     Route: 048
  2. VITAMIN D [Concomitant]
     Dosage: 1500 MG, QD
     Route: 048
  3. NIACIN [Concomitant]
     Dosage: 500 MG, QD
     Route: 048
  4. DICYCLOMINE [Concomitant]
     Dosage: 10 MG, PRN
     Route: 048
  5. TOPROL-XL [Concomitant]
     Dosage: 25 MG, QD
  6. LORAZEPAM [Concomitant]
     Dosage: 5 MG, QD
     Route: 048
  7. CALTRATE                           /00751519/ [Concomitant]
     Dosage: 600 MG, BID
  8. VITAMIN C                          /00008001/ [Concomitant]
     Dosage: 1000 MG, QD
  9. MULTIVITAMIN                       /00097801/ [Concomitant]
     Dosage: UNK UNK, QD
  10. TYLENOL (CAPLET) [Concomitant]
     Dosage: UNK UNK, PRN
     Route: 048
  11. ASPIRIN [Concomitant]
     Dosage: 81 MG, QD
     Route: 048
  12. CALCITONIN SALMON [Concomitant]
     Dosage: 200 IU, QD
     Route: 045
  13. FISH OIL [Concomitant]
     Dosage: 1000 MG, UNK
     Route: 048
  14. PROLIA [Suspect]
     Indication: OSTEOPOROSIS POSTMENOPAUSAL
     Dates: start: 20111001
  15. OCUVITE                            /01053801/ [Concomitant]
     Dosage: UNK UNK, QD
  16. CRANBERRY                          /01512301/ [Concomitant]
     Dosage: 3000 MG, QD
     Route: 048

REACTIONS (2)
  - NAIL DISORDER [None]
  - ONYCHOMADESIS [None]
